FAERS Safety Report 5220045-1 (Version None)
Quarter: 2006Q4

REPORT INFORMATION
  Report Type: 
  Country: None (occurrence: None)
  Receive Date: 20061201
  Receipt Date: 20060719
  Transmission Date: 20070319
  Serious: No
  Sender: FDA-Public Use
  Company Number: 2006PV017859

PATIENT
  Age: 68 Year
  Sex: Male
  Weight: 99.7913 kg

DRUGS (9)
  1. BYETTA [Suspect]
     Indication: DIABETES MELLITUS NON-INSULIN-DEPENDENT
     Dosage: SEE IMAGE
     Route: 058
     Dates: start: 20060101, end: 20060501
  2. BYETTA [Suspect]
     Indication: DIABETES MELLITUS NON-INSULIN-DEPENDENT
     Dosage: SEE IMAGE
     Route: 058
     Dates: start: 20060501
  3. GLIMEPIRIDE [Concomitant]
  4. ALLOPURINOL SODIUM [Concomitant]
  5. PRILOSEC [Concomitant]
  6. LISINOPRIL [Concomitant]
  7. LIPITOR [Concomitant]
  8. HYDROCODONE [Concomitant]
  9. IRON [Concomitant]

REACTIONS (1)
  - ALOPECIA [None]
